FAERS Safety Report 23531512 (Version 3)
Quarter: 2024Q1

REPORT INFORMATION
  Report Type: Spontaneous
  Country: JP (occurrence: JP)
  Receive Date: 20240216
  Receipt Date: 20240311
  Transmission Date: 20240410
  Serious: Yes (Other)
  Sender: FDA-Public Use
  Company Number: JP-UCBJ-CD202401147UCBPHAPROD

PATIENT
  Age: 6 Year
  Sex: Male
  Weight: 22 kg

DRUGS (7)
  1. LEVETIRACETAM [Suspect]
     Active Substance: LEVETIRACETAM
     Indication: Product used for unknown indication
     Dosage: UNK
     Route: 041
  2. MIDAZOLAM [Concomitant]
     Active Substance: MIDAZOLAM
     Indication: Status epilepticus
     Dosage: UNK
     Route: 042
  3. PERAMPANEL [Concomitant]
     Active Substance: PERAMPANEL
     Indication: Product used for unknown indication
     Dosage: UNK
     Route: 048
  4. THIOPENTAL SODIUM [Concomitant]
     Active Substance: THIOPENTAL SODIUM
     Indication: Product used for unknown indication
     Dosage: UNK
     Route: 042
  5. PHENOBARBITAL [Concomitant]
     Active Substance: PHENOBARBITAL
     Indication: Product used for unknown indication
     Dosage: UNK
  6. METHYLPREDNISOLONE [Concomitant]
     Active Substance: METHYLPREDNISOLONE
     Indication: Steroid therapy
     Dosage: 30 MILLIGRAM/KILOGRAM, ONCE DAILY (QD)
     Route: 042
  7. FOSPHENYTOIN SODIUM [Concomitant]
     Active Substance: FOSPHENYTOIN SODIUM
     Indication: Product used for unknown indication
     Dosage: UNK

REACTIONS (5)
  - Epilepsy [Unknown]
  - Pyramidal tract syndrome [Unknown]
  - Cerebral atrophy [Unknown]
  - Hypertonia [Unknown]
  - Psychomotor skills impaired [Unknown]
